FAERS Safety Report 8890723 (Version 1)
Quarter: 2012Q4

REPORT INFORMATION
  Report Type: 
  Country: US (occurrence: US)
  Receive Date: 20121107
  Receipt Date: 20121107
  Transmission Date: 20130627
  Serious: Yes (Other)
  Sender: FDA-Public Use
  Company Number: US-ROCHE-1152233

PATIENT
  Sex: Female

DRUGS (3)
  1. KLONOPIN [Suspect]
     Indication: ANXIETY
     Route: 048
  2. CYMBALTA [Suspect]
     Indication: DEPRESSION
     Route: 065
  3. NEURONTIN [Suspect]
     Indication: PRODUCT USED FOR UNKNOWN INDICATION
     Route: 065

REACTIONS (10)
  - Drug ineffective [Unknown]
  - Personality change [Not Recovered/Not Resolved]
  - Logorrhoea [Not Recovered/Not Resolved]
  - Hypersomnia [Not Recovered/Not Resolved]
  - Loss of consciousness [Recovered/Resolved]
  - TRANSIENT ISCHEMIC ATTACK [Recovering/Resolving]
  - Headache [Not Recovered/Not Resolved]
  - Confusional state [Recovering/Resolving]
  - Medication error [Unknown]
  - Neck pain [Not Recovered/Not Resolved]
